FAERS Safety Report 9805692 (Version 1)
Quarter: 2014Q1

REPORT INFORMATION
  Report Type: Spontaneous
  Country: US (occurrence: US)
  Receive Date: 20140109
  Receipt Date: 20140109
  Transmission Date: 20141002
  Serious: Yes (Death)
  Sender: FDA-Public Use
  Company Number: US-BAYER-2014-001702

PATIENT
  Age: 34 Year
  Sex: Male

DRUGS (3)
  1. PARACETAMOL + DIPHENHYDRAMINE [Suspect]
     Route: 061
  2. ETHANOL [Suspect]
     Route: 061
  3. FLUOCINONIDE [Suspect]
     Route: 061

REACTIONS (1)
  - Drug abuse [Fatal]
